FAERS Safety Report 5103639-3 (Version None)
Quarter: 2006Q3

REPORT INFORMATION
  Report Type: 
  Country: None (occurrence: None)
  Receive Date: 20060913
  Receipt Date: 20060905
  Transmission Date: 20061208
  Serious: Yes (Death, Hospitalization)
  Sender: FDA-Public Use
  Company Number: US-JNJFOC-20060902119

PATIENT
  Age: 45 Year
  Sex: Female

DRUGS (6)
  1. ACETAMINOPHEN [Suspect]
     Route: 048
  2. ACETAMINOPHEN [Suspect]
     Indication: SUICIDE ATTEMPT
     Route: 048
  3. FENTANYL [Suspect]
     Indication: SUICIDE ATTEMPT
     Route: 062
  4. ZOLPIDEM TARTRATE [Suspect]
     Indication: SUICIDE ATTEMPT
     Route: 048
  5. LORAZEPAM [Suspect]
     Indication: SUICIDE ATTEMPT
  6. OXYCODONE HCL [Suspect]
     Indication: SUICIDE ATTEMPT

REACTIONS (7)
  - BACTERAEMIA [None]
  - CEREBRAL HAEMORRHAGE [None]
  - COMPLETED SUICIDE [None]
  - FUNGAEMIA [None]
  - HEPATIC FAILURE [None]
  - MULTIPLE DRUG OVERDOSE INTENTIONAL [None]
  - RENAL IMPAIRMENT [None]
